FAERS Safety Report 5235769-X (Version None)
Quarter: 2007Q1

REPORT INFORMATION
  Report Type: 
  Country: None (occurrence: None)
  Receive Date: 20070212
  Receipt Date: 20070207
  Transmission Date: 20070707
  Serious: Yes (Hospitalization)
  Sender: FDA-Public Use
  Company Number: JP-AVENTIS-200513069JP

PATIENT
  Age: 68 Year
  Sex: Female
  Weight: 56 kg

DRUGS (13)
  1. ARAVA [Suspect]
     Indication: RHEUMATOID ARTHRITIS
     Route: 048
     Dates: start: 20041024, end: 20041026
  2. ARAVA [Suspect]
     Route: 048
     Dates: start: 20041027, end: 20041216
  3. ARAVA [Suspect]
     Route: 048
     Dates: start: 20041217, end: 20051014
  4. NORVASC [Concomitant]
     Indication: HYPERTENSION
     Route: 048
     Dates: start: 20050202
  5. PREDNISOLONE [Concomitant]
     Indication: RHEUMATOID ARTHRITIS
     Route: 048
     Dates: start: 20030906
  6. BONALON [Concomitant]
     Indication: OSTEOPOROSIS
     Dosage: DOSE: 1 TABLET
     Route: 048
     Dates: start: 20050416
  7. GASTROM [Concomitant]
     Indication: GASTRITIS
     Route: 048
     Dates: start: 20050620
  8. OLMETEC [Concomitant]
     Indication: HYPERTENSION
     Route: 048
     Dates: start: 20050730
  9. LOXONIN                            /00890701/ [Concomitant]
     Indication: RHEUMATOID ARTHRITIS
     Route: 048
     Dates: start: 20050202
  10. LASIX [Concomitant]
     Dates: end: 20050201
  11. DIOVANE [Concomitant]
     Dates: end: 20050201
  12. MUCOSTA [Concomitant]
     Route: 048
     Dates: start: 20040228
  13. RHEUMATREX                         /00113801/ [Concomitant]
     Route: 048
     Dates: start: 20040819, end: 20041022

REACTIONS (2)
  - CARDIAC FAILURE [None]
  - HEPATIC FUNCTION ABNORMAL [None]
